FAERS Safety Report 5320845-3 (Version None)
Quarter: 2007Q2

REPORT INFORMATION
  Report Type: 
  Country: None (occurrence: None)
  Receive Date: 20070502
  Receipt Date: 20070424
  Transmission Date: 20071010
  Serious: Yes (Hospitalization)
  Sender: FDA-Public Use
  Company Number: 163-20785-07041387

PATIENT
  Age: 63 Year
  Sex: Male

DRUGS (1)
  1. THALOMID [Suspect]
     Indication: NEOPLASM MALIGNANT
     Dosage: 100-50MG, 1 IN 1 D, ORAL
     Route: 048
     Dates: start: 20060414, end: 20070212

REACTIONS (6)
  - ANAEMIA [None]
  - ATRIAL TACHYCARDIA [None]
  - CATHETER RELATED INFECTION [None]
  - DIALYSIS DEVICE COMPLICATION [None]
  - PERITONITIS [None]
  - STAPHYLOCOCCAL INFECTION [None]
